FAERS Safety Report 16408226 (Version 1)
Quarter: 2019Q2

REPORT INFORMATION
  Report Type: Spontaneous
  Country: US (occurrence: US)
  Receive Date: 20190610
  Receipt Date: 20190610
  Transmission Date: 20190711
  Serious: Yes (Other)
  Sender: FDA-Public Use
  Company Number: US-LUPIN PHARMACEUTICALS INC.-2019-03436

PATIENT
  Age: 64 Year
  Sex: Male

DRUGS (2)
  1. CLOMIPRAMINE [Suspect]
     Active Substance: CLOMIPRAMINE
     Indication: DEPRESSION
     Dosage: UNK
     Route: 065
  2. CLOMIPRAMINE [Suspect]
     Active Substance: CLOMIPRAMINE
     Dosage: UNK
     Route: 065

REACTIONS (5)
  - Depressed level of consciousness [Unknown]
  - Irritability [Unknown]
  - Impatience [Unknown]
  - Anger [Unknown]
  - Product use in unapproved indication [Unknown]
